FAERS Safety Report 11216864 (Version 8)
Quarter: 2016Q2

REPORT INFORMATION
  Report Type: Spontaneous
  Country: US (occurrence: US)
  Receive Date: 20150624
  Receipt Date: 20160527
  Transmission Date: 20160815
  Serious: Yes (Hospitalization, Other)
  Sender: FDA-Public Use
  Company Number: US-PFIZER INC-2015207273

PATIENT
  Age: 52 Year
  Sex: Male
  Weight: 61.68 kg

DRUGS (2)
  1. LYRICA [Suspect]
     Active Substance: PREGABALIN
     Indication: NERVE BLOCK
     Dosage: 300 MG, DAILY
     Route: 048
  2. LYRICA [Suspect]
     Active Substance: PREGABALIN
     Indication: TESTICULAR CYST
     Dosage: 150 MG, 2X/DAY
     Route: 048
     Dates: start: 200806

REACTIONS (5)
  - Vision blurred [Unknown]
  - Emphysema [Not Recovered/Not Resolved]
  - Pneumothorax [Unknown]
  - Drug withdrawal syndrome [Unknown]
  - Painful respiration [Unknown]

NARRATIVE: CASE EVENT DATE: 20090601
